FAERS Safety Report 11737525 (Version 2)
Quarter: 2015Q4

REPORT INFORMATION
  Report Type: Spontaneous
  Country: US (occurrence: US)
  Receive Date: 20151113
  Receipt Date: 20151211
  Transmission Date: 20160304
  Serious: Yes (Hospitalization)
  Sender: FDA-Public Use
  Company Number: US-BRISTOL-MYERS SQUIBB COMPANY-BMS-2015-077344

PATIENT
  Sex: Female
  Weight: 124.72 kg

DRUGS (1)
  1. ELIQUIS [Suspect]
     Active Substance: APIXABAN
     Indication: PRODUCT USED FOR UNKNOWN INDICATION
     Dosage: 5 MG, UNK
     Route: 065
     Dates: start: 201510

REACTIONS (5)
  - Dyspnoea [Unknown]
  - Fatigue [Unknown]
  - Tremor [Unknown]
  - Somnolence [Unknown]
  - Rash [Recovering/Resolving]
